FAERS Safety Report 21952613 (Version 1)
Quarter: 2023Q1

REPORT INFORMATION
  Report Type: Spontaneous
  Country: ES (occurrence: ES)
  Receive Date: 20230203
  Receipt Date: 20230203
  Transmission Date: 20230417
  Serious: Yes (Hospitalization, Other)
  Sender: FDA-Public Use
  Company Number: ES-EXELIXIS-CABO-22050041

PATIENT
  Age: 48 Year
  Sex: Female

DRUGS (1)
  1. CABOMETYX [Suspect]
     Active Substance: CABOZANTINIB S-MALATE
     Indication: Renal cell carcinoma stage IV
     Dosage: UNK

REACTIONS (3)
  - Metastases to spine [Recovered/Resolved]
  - Corynebacterium infection [Recovered/Resolved]
  - Bacterial infection [Recovered/Resolved]
